FAERS Safety Report 9084070 (Version 1)
Quarter: 2013Q1

REPORT INFORMATION
  Report Type: Report from Study
  Country: US (occurrence: US)
  Receive Date: 20130130
  Receipt Date: 20130130
  Transmission Date: 20140127
  Serious: No
  Sender: FDA-Public Use
  Company Number: US-ABBOTT-12P-163-0954138-00

PATIENT
  Age: 41 Year
  Sex: Female

DRUGS (9)
  1. HUMIRA 40 MG/0.8 ML PEN [Suspect]
     Indication: CROHN^S DISEASE
     Dates: start: 20120622
  2. 6-MP [Concomitant]
     Indication: CROHN^S DISEASE
     Dosage: 75MG DAILY
  3. FOLIC ACID [Concomitant]
     Indication: VITAMIN SUPPLEMENTATION
     Dosage: 1MG DAILY
  4. BUPROPION [Concomitant]
     Indication: DEPRESSION
     Dosage: 100MG DAILY
  5. BUPROPION [Concomitant]
     Indication: ANXIETY
  6. AMBIEN [Concomitant]
     Indication: INSOMNIA
     Dosage: AT BEDTIME
  7. VICODIN [Concomitant]
     Indication: PAIN
     Dosage: AS NEEDED; TAKES IT VERY RARELY, MAYBE 3 TIMES A YEAR
  8. FERROUS SULFATE [Concomitant]
     Indication: ANAEMIA
     Dosage: 325MG DAILY
  9. MESALAMINE [Concomitant]
     Indication: CROHN^S DISEASE
     Dosage: DAILY
     Route: 054

REACTIONS (4)
  - Inappropriate schedule of drug administration [Not Recovered/Not Resolved]
  - Injection site reaction [Not Recovered/Not Resolved]
  - Injection site erythema [Not Recovered/Not Resolved]
  - Injection site warmth [Not Recovered/Not Resolved]
